FAERS Safety Report 5074886-4 (Version None)
Quarter: 2006Q3

REPORT INFORMATION
  Report Type: 
  Country: None (occurrence: None)
  Receive Date: 20060804
  Receipt Date: 20060726
  Transmission Date: 20061208
  Serious: No
  Sender: FDA-Public Use
  Company Number: A0359183A

PATIENT
  Age: 60 Year
  Sex: Male
  Weight: 96.2079 kg

DRUGS (10)
  1. AVANDIA [Suspect]
     Indication: DIABETES MELLITUS NON-INSULIN-DEPENDENT
     Dosage: SEE DOSAGE TEXT, ORAL
     Route: 048
     Dates: end: 20020101
  2. PIOGLITAZONE HCL [Suspect]
     Indication: DIABETES MELLITUS
     Dosage: PER DAY ORAL
     Route: 048
     Dates: start: 20011101, end: 20020101
  3. INSULIN [Concomitant]
  4. GLIMEPIRIDE [Concomitant]
  5. LISINOPRIL [Concomitant]
  6. ASPIRIN [Concomitant]
  7. MULTI-VITAMIN [Concomitant]
  8. ASCORBIC ACID [Concomitant]
  9. VITAMIN E [Concomitant]
  10. INDAPAMDE [Concomitant]

REACTIONS (10)
  - CATARACT [None]
  - DYSPNOEA [None]
  - EYE SWELLING [None]
  - JOINT SWELLING [None]
  - MACULAR OEDEMA [None]
  - OEDEMA PERIPHERAL [None]
  - PHOTOSENSITIVITY REACTION [None]
  - RETINAL OEDEMA [None]
  - VISION BLURRED [None]
  - WEIGHT INCREASED [None]
